FAERS Safety Report 6478248-4 (Version None)
Quarter: 2009Q4

REPORT INFORMATION
  Report Type: 
  Country: None (occurrence: None)
  Receive Date: 20091207
  Receipt Date: 20090127
  Transmission Date: 20100525
  Serious: No
  Sender: FDA-Public Use
  Company Number: US-AMGEN-KDL330692

PATIENT
  Sex: Female

DRUGS (1)
  1. ENBREL [Suspect]
     Indication: PSORIASIS
     Route: 058
     Dates: start: 20070801, end: 20090127

REACTIONS (4)
  - CONJUNCTIVITIS INFECTIVE [None]
  - CYSTITIS [None]
  - NASOPHARYNGITIS [None]
  - SINUS DISORDER [None]
